FAERS Safety Report 10723842 (Version 2)
Quarter: 2015Q4

REPORT INFORMATION
  Report Type: Report from Study
  Country: US (occurrence: US)
  Receive Date: 20150120
  Receipt Date: 20151110
  Transmission Date: 20160304
  Serious: Yes (Other)
  Sender: FDA-Public Use
  Company Number: US-SA-2015SA005337

PATIENT
  Age: 38 Year
  Sex: Male

DRUGS (2)
  1. TECFIDERA [Concomitant]
     Active Substance: DIMETHYL FUMARATE
     Dates: start: 201406
  2. AUBAGIO [Suspect]
     Active Substance: TERIFLUNOMIDE
     Indication: MULTIPLE SCLEROSIS
     Route: 048
     Dates: start: 20141219

REACTIONS (2)
  - Scleral hyperaemia [Unknown]
  - Nephrolithiasis [Unknown]
